FAERS Safety Report 24294649 (Version 2)
Quarter: 2024Q4

REPORT INFORMATION
  Report Type: Report from Study
  Country: US (occurrence: US)
  Receive Date: 20240906
  Receipt Date: 20241021
  Transmission Date: 20250114
  Serious: Yes (Death, Other)
  Sender: JAZZ
  Company Number: US-JAZZ PHARMACEUTICALS-2024-US-014433

PATIENT
  Age: 38 Year
  Sex: Male
  Weight: 100.7 kg

DRUGS (3)
  1. EPIDIOLEX [Suspect]
     Active Substance: CANNABIDIOL
     Indication: Lennox-Gastaut syndrome
     Dosage: 500 MILLILITER, BID
     Dates: start: 20200220
  2. EPIDIOLEX [Suspect]
     Active Substance: CANNABIDIOL
     Indication: Idiopathic generalised epilepsy
     Dosage: 5 MILLILITER, BID
     Route: 048
  3. EPIDIOLEX [Suspect]
     Active Substance: CANNABIDIOL
     Dosage: UNK
     Dates: end: 20240819

REACTIONS (1)
  - Death [Fatal]

NARRATIVE: CASE EVENT DATE: 20240819
